FAERS Safety Report 5828973-0 (Version None)
Quarter: 2008Q3

REPORT INFORMATION
  Report Type: 
  Country: None (occurrence: None)
  Receive Date: 20080731
  Receipt Date: 20080721
  Transmission Date: 20090109
  Serious: Yes (Hospitalization)
  Sender: FDA-Public Use
  Company Number: PHHY2008FR15342

PATIENT
  Sex: Female

DRUGS (6)
  1. TAREG [Interacting]
     Indication: HYPERTENSION
     Dosage: 160 MG 1 DAILY
     Route: 048
     Dates: start: 20080327
  2. LOPRESSOR [Suspect]
     Dosage: 200 MG 1DAILY DOSE
     Route: 048
  3. FLUDEX [Interacting]
     Indication: HYPERTENSION
     Dosage: 1 DAILY DOSE
     Dates: start: 20080327, end: 20080502
  4. CO-TAREG [Suspect]
  5. GLIMEPIRIDE [Concomitant]
     Dosage: UNK
     Route: 048
  6. ELISOR [Concomitant]
     Dosage: 1 DAILY DOSE
     Route: 048

REACTIONS (10)
  - BLOOD PRESSURE FLUCTUATION [None]
  - BLOOD PRESSURE SYSTOLIC INCREASED [None]
  - DIZZINESS [None]
  - DRUG INTERACTION [None]
  - GASTRITIS [None]
  - GENERAL PHYSICAL HEALTH DETERIORATION [None]
  - HEART RATE DECREASED [None]
  - HYPOKALAEMIA [None]
  - HYPONATRAEMIA [None]
  - ORTHOSTATIC HYPOTENSION [None]
